FAERS Safety Report 26148138 (Version 1)
Quarter: 2025Q4

REPORT INFORMATION
  Report Type: Spontaneous
  Country: CA (occurrence: CA)
  Receive Date: 20251212
  Receipt Date: 20251212
  Transmission Date: 20260118
  Serious: Yes (Other)
  Sender: TEVA
  Company Number: CA-TEVA-VS-3401018

PATIENT
  Age: 67 Year
  Sex: Male

DRUGS (1)
  1. ALENDRONIC ACID [Suspect]
     Active Substance: ALENDRONIC ACID
     Indication: Product used for unknown indication
     Dosage: TEVA
     Route: 065
     Dates: start: 2024

REACTIONS (8)
  - Cataract [Unknown]
  - Ear pain [Unknown]
  - Rash [Unknown]
  - Pruritus [Unknown]
  - Skin infection [Unknown]
  - Arthralgia [Unknown]
  - Abdominal discomfort [Unknown]
  - Bone pain [Unknown]

NARRATIVE: CASE EVENT DATE: 20250101
